FAERS Safety Report 7281955-7 (Version None)
Quarter: 2011Q1

REPORT INFORMATION
  Report Type: 
  Country: None (occurrence: None)
  Receive Date: 20110208
  Receipt Date: 20101229
  Transmission Date: 20110831
  Serious: Yes (Death, Life-Threatening, Other)
  Sender: FDA-Public Use
  Company Number: US-BAXTER-2010BH017757

PATIENT
  Age: 54 Year
  Sex: Female
  Weight: 38 kg

DRUGS (56)
  1. HEPARIN SODIUM INJECTION [Suspect]
     Route: 042
     Dates: start: 20080207, end: 20080207
  2. HEPARIN SODIUM INJECTION [Suspect]
     Route: 058
     Dates: start: 20070704, end: 20070711
  3. HEPARIN SODIUM INJECTION [Suspect]
     Route: 058
     Dates: start: 20070704, end: 20070711
  4. HEPARIN SODIUM INJECTION [Suspect]
     Route: 042
     Dates: start: 20070704, end: 20070712
  5. SIMVASTATIN [Concomitant]
     Indication: PRODUCT USED FOR UNKNOWN INDICATION
     Route: 048
  6. LASIX [Concomitant]
     Indication: PRODUCT USED FOR UNKNOWN INDICATION
     Route: 048
  7. HEPARIN SODIUM INJECTION [Suspect]
     Indication: TRICUSPID VALVE REPAIR
     Route: 042
     Dates: start: 20080207, end: 20080207
  8. HEPARIN SODIUM INJECTION [Suspect]
     Indication: ARTERIAL REPAIR
     Route: 042
     Dates: start: 20080207, end: 20080207
  9. HEPARIN SODIUM INJECTION [Suspect]
     Route: 042
     Dates: start: 20070704, end: 20070712
  10. LISINOPRIL [Concomitant]
     Indication: PRODUCT USED FOR UNKNOWN INDICATION
     Route: 048
  11. QVAR 40 [Concomitant]
     Indication: PRODUCT USED FOR UNKNOWN INDICATION
     Route: 065
  12. DOXYCYCLINE [Concomitant]
     Indication: PRODUCT USED FOR UNKNOWN INDICATION
     Route: 065
  13. DOBUTAMINE HCL [Concomitant]
     Indication: PRODUCT USED FOR UNKNOWN INDICATION
     Route: 042
  14. IPRATROPIUM BROMIDE [Concomitant]
     Indication: PRODUCT USED FOR UNKNOWN INDICATION
     Route: 065
  15. MUPIROCIN [Concomitant]
     Indication: PRODUCT USED FOR UNKNOWN INDICATION
     Route: 065
  16. HEPARIN SODIUM INJECTION [Suspect]
     Indication: INTRAVENOUS CATHETER MANAGEMENT
     Route: 042
     Dates: start: 20080207, end: 20080207
  17. HEPARIN SODIUM INJECTION [Suspect]
     Route: 042
     Dates: start: 20070704, end: 20070712
  18. COLACE [Concomitant]
     Indication: PRODUCT USED FOR UNKNOWN INDICATION
     Route: 065
  19. BECLOMETHASONE DIPROPIONATE [Concomitant]
     Indication: PRODUCT USED FOR UNKNOWN INDICATION
     Route: 065
  20. DELSYM [Concomitant]
     Indication: PRODUCT USED FOR UNKNOWN INDICATION
     Route: 065
  21. AZITHROMYCIN [Concomitant]
     Indication: PRODUCT USED FOR UNKNOWN INDICATION
     Route: 065
  22. HEPARIN SODIUM INJECTION [Suspect]
     Route: 058
     Dates: start: 20070704, end: 20070711
  23. HEPARIN SODIUM INJECTION [Suspect]
     Route: 042
     Dates: start: 20070704, end: 20070712
  24. HEPARIN SODIUM INJECTION [Suspect]
     Indication: ANGIOGRAM
     Route: 042
     Dates: start: 20080117, end: 20080117
  25. COREG [Concomitant]
     Indication: PRODUCT USED FOR UNKNOWN INDICATION
     Route: 048
  26. ASPIRIN [Concomitant]
     Indication: PRODUCT USED FOR UNKNOWN INDICATION
     Route: 048
  27. CHLORHEXIDINE GLUCONATE [Concomitant]
     Indication: PRODUCT USED FOR UNKNOWN INDICATION
     Route: 065
  28. HEPARIN SODIUM INJECTION [Suspect]
     Indication: INTRA-AORTIC BALLOON PLACEMENT
     Route: 042
     Dates: start: 20080207, end: 20080207
  29. HEPARIN SODIUM INJECTION [Suspect]
     Route: 058
     Dates: start: 20070704, end: 20070711
  30. HEPARIN SODIUM INJECTION [Suspect]
     Route: 058
     Dates: start: 20070704, end: 20070711
  31. HEPARIN SODIUM INJECTION [Suspect]
     Route: 058
     Dates: start: 20070704, end: 20070711
  32. GLIPIZIDE [Concomitant]
     Indication: PRODUCT USED FOR UNKNOWN INDICATION
     Route: 048
  33. CITRUCEL [Concomitant]
     Indication: PRODUCT USED FOR UNKNOWN INDICATION
     Route: 048
  34. HYDROCHLOROTHIAZIDE [Concomitant]
     Indication: PRODUCT USED FOR UNKNOWN INDICATION
     Route: 065
  35. ALBUTEROL SULFATE [Concomitant]
     Indication: PRODUCT USED FOR UNKNOWN INDICATION
     Route: 065
  36. POTASSIUM [Concomitant]
     Indication: PRODUCT USED FOR UNKNOWN INDICATION
     Route: 065
  37. HEPARIN SODIUM INJECTION [Suspect]
     Indication: MITRAL VALVE REPAIR
     Route: 042
     Dates: start: 20080207, end: 20080207
  38. HEPARIN SODIUM INJECTION [Suspect]
     Route: 058
     Dates: start: 20070704, end: 20070711
  39. HEPARIN SODIUM INJECTION [Suspect]
     Indication: CATHETERISATION CARDIAC
     Route: 042
     Dates: start: 20080117, end: 20080117
  40. CHERATUSSIN [Concomitant]
     Indication: PRODUCT USED FOR UNKNOWN INDICATION
     Route: 065
  41. MAGNESIUM [Concomitant]
     Indication: PRODUCT USED FOR UNKNOWN INDICATION
     Route: 065
  42. HEPARIN SODIUM INJECTION [Suspect]
     Indication: VENTRICULAR ASSIST DEVICE INSERTION
     Route: 042
     Dates: start: 20080207, end: 20080207
  43. METFORMIN HCL [Concomitant]
     Indication: PRODUCT USED FOR UNKNOWN INDICATION
     Route: 048
  44. CALCIUM [Concomitant]
     Indication: PRODUCT USED FOR UNKNOWN INDICATION
     Route: 065
  45. CAPTOPRIL [Concomitant]
     Indication: PRODUCT USED FOR UNKNOWN INDICATION
     Route: 065
  46. AMOXICILLIN [Concomitant]
     Indication: PRODUCT USED FOR UNKNOWN INDICATION
     Route: 065
  47. ACETYLCYSTEINE [Concomitant]
     Indication: PRODUCT USED FOR UNKNOWN INDICATION
     Route: 065
  48. VERSED [Concomitant]
     Indication: PRODUCT USED FOR UNKNOWN INDICATION
     Route: 065
  49. HEPARIN SODIUM INJECTION [Suspect]
     Route: 042
     Dates: start: 20070704, end: 20070712
  50. HEPARIN SODIUM INJECTION [Suspect]
     Route: 042
     Dates: start: 20070704, end: 20070712
  51. HEPARIN SODIUM INJECTION [Suspect]
     Route: 042
     Dates: start: 20070704, end: 20070712
  52. FAMODINE [Concomitant]
     Indication: PRODUCT USED FOR UNKNOWN INDICATION
     Route: 048
  53. LOVENOX [Concomitant]
     Indication: PRODUCT USED FOR UNKNOWN INDICATION
     Route: 065
  54. PSEUDOEPHEDRINE HCL [Concomitant]
     Indication: PRODUCT USED FOR UNKNOWN INDICATION
     Route: 065
  55. INSULIN [Concomitant]
     Indication: PRODUCT USED FOR UNKNOWN INDICATION
     Route: 065
  56. PREDNISONE [Concomitant]
     Indication: PRODUCT USED FOR UNKNOWN INDICATION
     Route: 065

REACTIONS (10)
  - INTESTINAL ISCHAEMIA [None]
  - MULTI-ORGAN FAILURE [None]
  - HAEMORRHAGIC DIATHESIS [None]
  - RESPIRATORY FAILURE [None]
  - CARDIOGENIC SHOCK [None]
  - HYPOTENSION [None]
  - CARDIAC ARREST [None]
  - ATRIAL FIBRILLATION [None]
  - ACIDOSIS [None]
  - LIVER DISORDER [None]
